FAERS Safety Report 8298576-X (Version None)
Quarter: 2012Q2

REPORT INFORMATION
  Report Type: 
  Country: None (occurrence: None)
  Receive Date: 20120419
  Receipt Date: 20110929
  Transmission Date: 20120825
  Serious: No
  Sender: FDA-Public Use
  Company Number: US-ABBOTT-11P-163-0859522-00

PATIENT
  Sex: Female
  Weight: 36.774 kg

DRUGS (1)
  1. LUPRON DEPOT-PED [Suspect]
     Indication: PRECOCIOUS PUBERTY
     Route: 030
     Dates: start: 20110401, end: 20110914

REACTIONS (5)
  - OROPHARYNGEAL PAIN [None]
  - COUGH [None]
  - PYREXIA [None]
  - WEIGHT DECREASED [None]
  - GLOSSODYNIA [None]
